FAERS Safety Report 6060374-5 (Version None)
Quarter: 2009Q1

REPORT INFORMATION
  Report Type: 
  Country: None (occurrence: None)
  Receive Date: 20090130
  Receipt Date: 20090130
  Transmission Date: 20090719
  Serious: Yes (Hospitalization)
  Sender: FDA-Public Use
  Company Number: None

PATIENT

DRUGS (1)
  1. FOSAMAX [Suspect]

REACTIONS (2)
  - FRACTURE [None]
  - OSTEOGENESIS IMPERFECTA [None]
